FAERS Safety Report 6575751-3 (Version None)
Quarter: 2010Q1

REPORT INFORMATION
  Report Type: 
  Country: None (occurrence: None)
  Receive Date: 20100208
  Receipt Date: 20100208
  Transmission Date: 20100710
  Serious: No
  Sender: FDA-Public Use
  Company Number: None

PATIENT
  Age: 66 Year
  Sex: Male
  Weight: 70.3075 kg

DRUGS (2)
  1. TRAZODONE HCL [Suspect]
     Indication: INSOMNIA
     Dosage: 3 @HS PO
     Route: 048
     Dates: start: 20091001, end: 20091005
  2. TRAZODONE HCL [Suspect]
     Indication: INSOMNIA
     Dosage: 1 @HS PO
     Route: 048
     Dates: start: 20091006, end: 20091006

REACTIONS (4)
  - CONFUSIONAL STATE [None]
  - DRUG WITHDRAWAL SYNDROME [None]
  - LETHARGY [None]
  - PRODUCT SUBSTITUTION ISSUE [None]
